FAERS Safety Report 18817558 (Version 2)
Quarter: 2021Q1

REPORT INFORMATION
  Report Type: Spontaneous
  Country: HK (occurrence: HK)
  Receive Date: 20210201
  Receipt Date: 20210218
  Transmission Date: 20210419
  Serious: Yes (Other)
  Sender: FDA-Public Use
  Company Number: HK-STRIDES ARCOLAB LIMITED-2021SP001327

PATIENT
  Age: 4 Year
  Sex: Female

DRUGS (24)
  1. IMIPENEM AND CILASTATIN [Suspect]
     Active Substance: CILASTATIN SODIUM\IMIPENEM
     Indication: MYCOBACTERIUM ABSCESSUS INFECTION
  2. GENTAMICIN. [Suspect]
     Active Substance: GENTAMICIN
     Indication: MYCOBACTERIUM ABSCESSUS INFECTION
     Dosage: ANTIBIOTIC?INFUSED CEMENT
     Route: 065
  3. VANCOMYCIN [Suspect]
     Active Substance: VANCOMYCIN
     Indication: SUBCUTANEOUS ABSCESS
     Dosage: ANTIBIOTIC?INFUSED CEMENT
     Route: 065
  4. VANCOMYCIN [Suspect]
     Active Substance: VANCOMYCIN
     Indication: OSTEOMYELITIS
  5. CLARITHROMYCIN. [Suspect]
     Active Substance: CLARITHROMYCIN
     Indication: OSTEOMYELITIS
     Dosage: UNK
     Route: 048
  6. INTERFERON GAMMA NOS [Suspect]
     Active Substance: INTERFERON GAMMA
     Indication: SUBCUTANEOUS ABSCESS
  7. AMIKACIN. [Suspect]
     Active Substance: AMIKACIN
     Indication: OSTEOMYELITIS
     Dosage: UNK
     Route: 042
  8. AMIKACIN. [Suspect]
     Active Substance: AMIKACIN
     Indication: MYCOBACTERIUM ABSCESSUS INFECTION
  9. SULFAMETHOXAZOLE, TRIMETHOPRIM [Suspect]
     Active Substance: SULFAMETHOXAZOLE\TRIMETHOPRIM
     Indication: MYCOBACTERIUM ABSCESSUS INFECTION
  10. IMIPENEM AND CILASTATIN [Suspect]
     Active Substance: CILASTATIN SODIUM\IMIPENEM
     Indication: OSTEOMYELITIS
     Route: 042
  11. INTERFERON GAMMA NOS [Suspect]
     Active Substance: INTERFERON GAMMA
     Indication: OSTEOMYELITIS
     Dosage: UNK, THRICE WEEKLY
     Route: 065
  12. SULFAMETHOXAZOLE, TRIMETHOPRIM [Suspect]
     Active Substance: SULFAMETHOXAZOLE\TRIMETHOPRIM
     Indication: SUBCUTANEOUS ABSCESS
     Dosage: TRIMETHOPRIM DOSAGE 10 MG/KG/DAY
     Route: 048
  13. CEFOXITIN [Suspect]
     Active Substance: CEFOXITIN SODIUM
     Indication: SUBCUTANEOUS ABSCESS
  14. GENTAMICIN. [Suspect]
     Active Substance: GENTAMICIN
     Indication: OSTEOMYELITIS
  15. CEFOXITIN [Suspect]
     Active Substance: CEFOXITIN SODIUM
     Indication: MYCOBACTERIUM ABSCESSUS INFECTION
     Dosage: UNK
     Route: 042
  16. VANCOMYCIN [Suspect]
     Active Substance: VANCOMYCIN
     Indication: MYCOBACTERIUM ABSCESSUS INFECTION
  17. IMIPENEM AND CILASTATIN [Suspect]
     Active Substance: CILASTATIN SODIUM\IMIPENEM
     Indication: SUBCUTANEOUS ABSCESS
  18. CLARITHROMYCIN. [Suspect]
     Active Substance: CLARITHROMYCIN
     Indication: SUBCUTANEOUS ABSCESS
  19. CLARITHROMYCIN. [Suspect]
     Active Substance: CLARITHROMYCIN
     Indication: MYCOBACTERIUM ABSCESSUS INFECTION
  20. INTERFERON GAMMA NOS [Suspect]
     Active Substance: INTERFERON GAMMA
     Indication: MYCOBACTERIUM ABSCESSUS INFECTION
  21. GENTAMICIN. [Suspect]
     Active Substance: GENTAMICIN
     Indication: SUBCUTANEOUS ABSCESS
  22. CEFOXITIN [Suspect]
     Active Substance: CEFOXITIN SODIUM
     Indication: OSTEOMYELITIS
  23. AMIKACIN. [Suspect]
     Active Substance: AMIKACIN
     Indication: SUBCUTANEOUS ABSCESS
     Dosage: ANTIBIOTIC?INFUSED CEMENT
     Route: 065
  24. SULFAMETHOXAZOLE, TRIMETHOPRIM [Suspect]
     Active Substance: SULFAMETHOXAZOLE\TRIMETHOPRIM
     Indication: OSTEOMYELITIS

REACTIONS (3)
  - Drug eruption [Recovered/Resolved]
  - Hepatotoxicity [Recovered/Resolved]
  - Hepatitis [Recovered/Resolved]
